FAERS Safety Report 5512250-1 (Version None)
Quarter: 2007Q4

REPORT INFORMATION
  Report Type: 
  Country: None (occurrence: None)
  Receive Date: 20071108
  Receipt Date: 20071108
  Transmission Date: 20080405
  Serious: Yes (Hospitalization)
  Sender: FDA-Public Use
  Company Number: None

PATIENT
  Sex: Male
  Weight: 100.6985 kg

DRUGS (2)
  1. PEGASYS [Suspect]
     Indication: HEPATITIS C
     Dosage: 180MCG WEEKLY SC
     Route: 058
     Dates: start: 20070402, end: 20070901
  2. COPEGUS [Suspect]
     Indication: HEPATITIS C
     Dosage: 200MG - TOTAL 1400MG A DAY PO
     Route: 048
     Dates: start: 20070402, end: 20070901

REACTIONS (9)
  - ABDOMINAL PAIN [None]
  - ANAEMIA [None]
  - DIARRHOEA [None]
  - DISSEMINATED INTRAVASCULAR COAGULATION [None]
  - DYSPNOEA [None]
  - INTERNATIONAL NORMALISED RATIO INCREASED [None]
  - PLEURAL EFFUSION [None]
  - WAIST CIRCUMFERENCE INCREASED [None]
  - WEIGHT DECREASED [None]
